FAERS Safety Report 5632222-6 (Version None)
Quarter: 2008Q1

REPORT INFORMATION
  Report Type: 
  Country: None (occurrence: None)
  Receive Date: 20080220
  Receipt Date: 20080211
  Transmission Date: 20080703
  Serious: Yes (Hospitalization)
  Sender: FDA-Public Use
  Company Number: AR-ABBOTT-07P-007-0374096-00

PATIENT
  Sex: Male

DRUGS (6)
  1. RITONAVIR SOFT GELATIN CAPSULES [Suspect]
     Indication: HIV INFECTION
     Route: 048
     Dates: start: 20070319, end: 20070616
  2. RITONAVIR SOFT GELATIN CAPSULES [Suspect]
     Dates: start: 20070319, end: 20070616
  3. APTIVUS [Suspect]
     Indication: HIV INFECTION
     Route: 048
     Dates: start: 20070319, end: 20070616
  4. LAMIVUDINE [Suspect]
     Indication: HIV INFECTION
     Route: 048
     Dates: start: 20070319, end: 20070616
  5. TENOFOVIR DISOPROXIL FUMARATE [Suspect]
     Indication: HIV INFECTION
     Route: 048
     Dates: start: 20070319, end: 20070616
  6. ENFUVIRTIDE [Suspect]
     Indication: HIV INFECTION
     Route: 058
     Dates: start: 20070319, end: 20070616

REACTIONS (5)
  - CONFUSIONAL STATE [None]
  - CYSTIC LYMPHANGIOMA [None]
  - EPISTAXIS [None]
  - MELAENA [None]
  - PSYCHOMOTOR HYPERACTIVITY [None]
